FAERS Safety Report 9170751 (Version 3)
Quarter: 2013Q2

REPORT INFORMATION
  Report Type: Spontaneous
  Country: US (occurrence: US)
  Receive Date: 20130319
  Receipt Date: 20130410
  Transmission Date: 20140414
  Serious: Yes (Other)
  Sender: FDA-Public Use
  Company Number: US-PFIZER INC-2013086536

PATIENT
  Age: 56 Year
  Sex: Female
  Weight: 58.96 kg

DRUGS (6)
  1. AROMASIN [Suspect]
     Indication: BREAST CANCER
     Dosage: UNK
     Dates: start: 201105
  2. AROMASIN [Suspect]
     Indication: BLOOD OESTROGEN ABNORMAL
  3. AROMASIN [Suspect]
     Indication: PROGESTERONE ABNORMAL
  4. EXEMESTANE [Suspect]
     Indication: BREAST CANCER
     Dosage: UNK
  5. EXEMESTANE [Suspect]
     Indication: BLOOD OESTROGEN ABNORMAL
  6. EXEMESTANE [Suspect]
     Indication: PROGESTERONE ABNORMAL

REACTIONS (10)
  - Osteoporosis [Unknown]
  - Amnesia [Not Recovered/Not Resolved]
  - Arthritis [Unknown]
  - Bone disorder [Unknown]
  - Arthropathy [Unknown]
  - Fibromyalgia [Unknown]
  - Muscle disorder [Unknown]
  - Arthralgia [Unknown]
  - Myalgia [Unknown]
  - Drug dispensing error [Unknown]
